FAERS Safety Report 8560460-1 (Version None)
Quarter: 2012Q3

REPORT INFORMATION
  Report Type: 
  Country: None (occurrence: None)
  Receive Date: 20120802
  Receipt Date: 20110502
  Transmission Date: 20120928
  Serious: Yes (Hospitalization, Other)
  Sender: FDA-Public Use
  Company Number: US-BAYER-200934556NA

PATIENT
  Age: 22 Year
  Sex: Female
  Weight: 125 kg

DRUGS (16)
  1. YAZ [Suspect]
     Indication: PREMENSTRUAL SYNDROME
     Dosage: UNK UNK, QD
     Route: 048
     Dates: start: 20050901, end: 20061201
  2. INDOCIN [Concomitant]
  3. OMEPRAZOLE [Concomitant]
  4. TRI-SPRINTEC [Concomitant]
     Dosage: UNK
     Dates: start: 20080101, end: 20090821
  5. YASMIN [Suspect]
     Indication: PREMENSTRUAL SYNDROME
     Dosage: UNK
     Route: 048
     Dates: start: 20050901, end: 20061201
  6. ALEVE COLD AND SINUS [Concomitant]
     Dates: start: 19970101
  7. CHAMOMILE [Concomitant]
  8. ANTIBIOTICS [Concomitant]
     Indication: BRONCHITIS
  9. YAZ [Suspect]
     Dosage: UNK UNK, QD
     Route: 048
     Dates: start: 20081101, end: 20090101
  10. DROSPIRENONE AND ETHINYL ESTRADIOL [Suspect]
     Route: 048
     Dates: start: 20081101, end: 20090101
  11. ASCORBIC ACID [Concomitant]
     Dates: start: 19990101
  12. HYDROCODONE [Concomitant]
     Dates: start: 20071201
  13. DROSPIRENONE AND ETHINYL ESTRADIOL [Suspect]
     Indication: PREMENSTRUAL SYNDROME
     Dosage: UNK
     Route: 048
     Dates: start: 20050901, end: 20061201
  14. YASMIN [Suspect]
     Route: 048
     Dates: start: 20081101, end: 20090101
  15. NSAID'S [Concomitant]
     Indication: PRODUCT USED FOR UNKNOWN INDICATION
  16. MOTRIN [Concomitant]
     Dates: start: 19970101

REACTIONS (4)
  - ABDOMINAL PAIN UPPER [None]
  - CHOLELITHIASIS [None]
  - CHOLECYSTECTOMY [None]
  - CHOLECYSTITIS CHRONIC [None]
